FAERS Safety Report 8533473 (Version 4)
Quarter: 2013Q4

REPORT INFORMATION
  Report Type: Report from Study
  Country: MX (occurrence: MX)
  Receive Date: 20120427
  Receipt Date: 20131004
  Transmission Date: 20140711
  Serious: Yes (Hospitalization, Other)
  Sender: FDA-Public Use
  Company Number: PHHY2012MX034041

PATIENT
  Age: 73 Year
  Sex: Female

DRUGS (8)
  1. GALVUS MET [Suspect]
     Indication: DIABETES MELLITUS
     Dosage: 2 DF, DAILY
     Dates: start: 201203
  2. DIOVAN [Suspect]
     Indication: HYPERTENSION
     Dosage: 1 DF, DAILY
     Dates: start: 201104, end: 201204
  3. AMARYL [Concomitant]
     Indication: DIABETES MELLITUS
     Dosage: 1 DF, DAILY
     Dates: start: 201202
  4. MICCIL [Concomitant]
     Indication: POLYURIA
     Dosage: 1 DF, DAILY
     Dates: start: 201008
  5. LOSARTAN [Concomitant]
     Indication: BLOOD PRESSURE
     Dosage: 2 DF, DAILY
     Dates: start: 2010
  6. ZYLOPRIM [Concomitant]
     Dosage: 1 DF, DAILY
     Dates: start: 2011
  7. VENALOT (COUMARIN) [Concomitant]
     Indication: CARDIOVASCULAR DISORDER
     Dosage: 2 DF, DAILY
     Dates: start: 201108
  8. EXFORGE HCT [Concomitant]
     Indication: HYPERTENSION
     Dosage: 1 TABLET (5/12.5/160 MG), DAILY
     Route: 048
     Dates: start: 201303, end: 201306

REACTIONS (2)
  - Blood pressure increased [Recovered/Resolved]
  - Anxiety [Recovered/Resolved]
